FAERS Safety Report 5750309-4 (Version None)
Quarter: 2008Q2

REPORT INFORMATION
  Report Type: 
  Country: None (occurrence: None)
  Receive Date: 20080521
  Receipt Date: 20080521
  Transmission Date: 20081010
  Serious: Yes (Hospitalization)
  Sender: FDA-Public Use
  Company Number: None

PATIENT
  Age: 27 Year
  Sex: Male
  Weight: 64.6 kg

DRUGS (1)
  1. ZYPREXA [Suspect]
     Indication: BIPOLAR DISORDER
     Dosage: 20MG BID PO
     Route: 048
     Dates: start: 20080501, end: 20080515

REACTIONS (2)
  - DIABETIC KETOACIDOSIS [None]
  - METABOLIC ACIDOSIS [None]
